FAERS Safety Report 15822784 (Version 2)
Quarter: 2019Q1

REPORT INFORMATION
  Report Type: Report from Study
  Country: US (occurrence: US)
  Receive Date: 20190114
  Receipt Date: 20190311
  Transmission Date: 20190417
  Serious: Yes (Hospitalization, Other)
  Sender: FDA-Public Use
  Company Number: US-ASTRAZENECA-2019SE04957

PATIENT
  Age: 195 Day
  Sex: Female

DRUGS (13)
  1. AKA PROVENTIL [Concomitant]
     Dosage: INHALE 3 ML EVERY HOURS AS NEEDED
     Route: 048
  2. PREDNISOLONE. [Concomitant]
     Active Substance: PREDNISOLONE
     Route: 048
  3. LACTOBACILLUS CASEI VAR RHAMNOSUS [Concomitant]
     Dosage: 15 BILLIONS CELL DAILY
     Route: 048
  4. PREVACID [Concomitant]
     Active Substance: LANSOPRAZOLE
  5. PROAIR HFA [Concomitant]
     Active Substance: ALBUTEROL SULFATE
  6. AKA DUONEB [Concomitant]
  7. DEXAMETHASONE. [Concomitant]
     Active Substance: DEXAMETHASONE
     Dosage: 4 MG
  8. LANSOPRAZOLE. [Concomitant]
     Active Substance: LANSOPRAZOLE
  9. TYLENOL [Concomitant]
     Active Substance: ACETAMINOPHEN
     Dosage: EVERY FOUR HOURS AS NEEDED
     Route: 054
  10. SYNAGIS [Suspect]
     Active Substance: PALIVIZUMAB
     Indication: RESPIRATORY DISORDER
     Dosage: 15 MG/KG, UNKNOWN
     Route: 030
  11. AMOX/K CLAV [Concomitant]
     Active Substance: AMOXICILLIN\CLAVULANATE POTASSIUM
  12. VITAMIN D [Concomitant]
     Active Substance: CHOLECALCIFEROL
  13. CEFDINIR. [Concomitant]
     Active Substance: CEFDINIR

REACTIONS (14)
  - Nasopharyngitis [Unknown]
  - Rhinovirus infection [Unknown]
  - Diarrhoea [Unknown]
  - Benign lymph node neoplasm [Unknown]
  - Vomiting [Unknown]
  - Bronchial hyperreactivity [Unknown]
  - Upper respiratory tract infection [Unknown]
  - Cellulitis [Unknown]
  - Candida infection [Unknown]
  - Oxygen saturation decreased [Not Recovered/Not Resolved]
  - Respiratory distress [Unknown]
  - Gastrooesophageal reflux disease [Unknown]
  - Bronchiolitis [Unknown]
  - Enterovirus infection [Unknown]

NARRATIVE: CASE EVENT DATE: 201811
